FAERS Safety Report 8880406 (Version 1)
Quarter: 2012Q4

REPORT INFORMATION
  Report Type: 
  Country: AR (occurrence: AR)
  Receive Date: 20121101
  Receipt Date: 20121101
  Transmission Date: 20130627
  Serious: Yes (Other)
  Sender: FDA-Public Use
  Company Number: PHHY2012AR086400

PATIENT
  Age: 78 Year
  Sex: Male

DRUGS (1)
  1. EXFORGE [Suspect]
     Indication: BLOOD PRESSURE
     Dosage: 1 DF(160/5mg), daily
     Dates: start: 201108

REACTIONS (1)
  - Coronary artery stenosis [Recovered/Resolved]
